FAERS Safety Report 9290065 (Version 1)
Quarter: 2013Q2

REPORT INFORMATION
  Report Type: Spontaneous
  Country: US (occurrence: None)
  Receive Date: 20130514
  Receipt Date: 20130514
  Transmission Date: 20140414
  Serious: No
  Sender: FDA-Public Use
  Company Number: None

PATIENT
  Age: 72 Year
  Sex: Female
  Weight: 68.04 kg

DRUGS (2)
  1. SMZ/TMP DS [Suspect]
     Indication: URINARY TRACT INFECTION
     Dosage: 1 TABLET TWICE DAILY, MOUTH
     Route: 048
     Dates: start: 20130412, end: 20130413
  2. OCCUVITE [Concomitant]

REACTIONS (1)
  - Pain in extremity [None]
